FAERS Safety Report 8117396-X (Version None)
Quarter: 2012Q1

REPORT INFORMATION
  Report Type: 
  Country: None (occurrence: None)
  Receive Date: 20120206
  Receipt Date: 20120201
  Transmission Date: 20120608
  Serious: Yes (Life-Threatening, Hospitalization, Other)
  Sender: FDA-Public Use
  Company Number: US-ASTRAZENECA-2012SE06985

PATIENT
  Age: 49 Year
  Sex: Male
  Weight: 84.8 kg

DRUGS (8)
  1. SEROQUEL [Suspect]
     Route: 048
  2. PRILOSEC [Concomitant]
     Dosage: DAILY
  3. SEROQUEL [Suspect]
     Indication: MAJOR DEPRESSION
     Route: 048
     Dates: start: 20030101
  4. TRAZODONE HCL [Concomitant]
  5. LEXAPRO [Concomitant]
  6. SIMVASTATIN [Concomitant]
     Dosage: DAILY
  7. SEROQUEL [Suspect]
     Indication: BIPOLAR DISORDER
     Route: 048
     Dates: start: 20030101
  8. SEROQUEL [Suspect]
     Route: 048

REACTIONS (6)
  - DEPRESSION [None]
  - HEPATIC STEATOSIS [None]
  - COMA [None]
  - PANCREATITIS [None]
  - ALCOHOLISM [None]
  - DRUG INEFFECTIVE [None]
